FAERS Safety Report 21955971 (Version 1)
Quarter: 2023Q1

REPORT INFORMATION
  Report Type: Spontaneous
  Country: DE (occurrence: DE)
  Receive Date: 20230206
  Receipt Date: 20230206
  Transmission Date: 20230417
  Serious: Yes (Other)
  Sender: FDA-Public Use
  Company Number: DE-TAKEDA-2023TUS012084

PATIENT
  Age: 27 Year
  Sex: Female

DRUGS (1)
  1. ENTYVIO [Suspect]
     Active Substance: VEDOLIZUMAB
     Indication: Crohn^s disease
     Dosage: UNK
     Route: 058

REACTIONS (7)
  - Urosepsis [Unknown]
  - Kidney rupture [Unknown]
  - Urinary bladder rupture [Unknown]
  - Ureterolithiasis [Unknown]
  - Ill-defined disorder [Unknown]
  - Cystitis [Unknown]
  - Pregnancy [Unknown]
